FAERS Safety Report 6665381-7 (Version None)
Quarter: 2010Q2

REPORT INFORMATION
  Report Type: 
  Country: None (occurrence: None)
  Receive Date: 20100402
  Receipt Date: 20100324
  Transmission Date: 20101027
  Serious: Yes (Death)
  Sender: FDA-Public Use
  Company Number: CA-JNJFOC-20100308052

PATIENT
  Sex: Female
  Weight: 68 kg

DRUGS (1)
  1. REMICADE [Suspect]
     Indication: COLITIS ULCERATIVE
     Dosage: 10 MG/KG
     Route: 042

REACTIONS (2)
  - DRUG EFFECT DECREASED [None]
  - VICTIM OF HOMICIDE [None]
